FAERS Safety Report 21020276 (Version 2)
Quarter: 2022Q3

REPORT INFORMATION
  Report Type: Spontaneous
  Country: US (occurrence: US)
  Receive Date: 20220628
  Receipt Date: 20220801
  Transmission Date: 20221027
  Serious: Yes (Other)
  Sender: FDA-Public Use
  Company Number: US-JNJFOC-20220644448

PATIENT
  Age: 46 Year
  Sex: Female

DRUGS (7)
  1. ELMIRON [Suspect]
     Active Substance: PENTOSAN POLYSULFATE SODIUM
     Indication: Cystitis interstitial
     Route: 048
     Dates: start: 20060620, end: 201903
  2. ELMIRON [Suspect]
     Active Substance: PENTOSAN POLYSULFATE SODIUM
     Route: 048
     Dates: end: 20191023
  3. AZITHROMYCIN [Concomitant]
     Active Substance: AZITHROMYCIN
     Indication: Bacterial infection
     Dates: start: 200803, end: 201912
  4. TAMSULOSIN [Concomitant]
     Active Substance: TAMSULOSIN
     Indication: Urinary tract disorder
     Dates: start: 201309, end: 202009
  5. IMIPRAMINE HYDROCHLORIDE [Concomitant]
     Active Substance: IMIPRAMINE HYDROCHLORIDE
     Indication: Depression
     Dates: start: 201903, end: 201906
  6. LORAZEPAM [Concomitant]
     Active Substance: LORAZEPAM
     Indication: Seizure
     Dates: start: 201911, end: 202111
  7. NITROFURANTOIN MONOHYDRATE MACROCRYSTALS [Concomitant]
     Active Substance: NITROFURANTOIN\NITROFURANTOIN MONOHYDRATE
     Indication: Urinary tract infection
     Dates: start: 202010, end: 202102

REACTIONS (5)
  - Dry age-related macular degeneration [Not Recovered/Not Resolved]
  - Cataract nuclear [Not Recovered/Not Resolved]
  - Erythema [Unknown]
  - Diarrhoea [Unknown]
  - Off label use [Unknown]

NARRATIVE: CASE EVENT DATE: 20060620
